FAERS Safety Report 5134467-0 (Version None)
Quarter: 2006Q4

REPORT INFORMATION
  Report Type: 
  Country: None (occurrence: None)
  Receive Date: 20061025
  Receipt Date: 20051227
  Transmission Date: 20070319
  Serious: Yes (Hospitalization)
  Sender: FDA-Public Use
  Company Number: DEWYE265627DEC05

PATIENT
  Sex: Male

DRUGS (3)
  1. ENBREL [Suspect]
     Indication: PSORIATIC ARTHROPATHY
     Dosage: UNKNOWN
     Route: 058
  2. ENBREL [Suspect]
     Dosage: UNKNOWN
     Route: 058
     Dates: start: 20051212
  3. TRIAMCINOLONE [Concomitant]

REACTIONS (2)
  - MYOCARDIAL INFARCTION [None]
  - THROMBOCYTHAEMIA [None]
